FAERS Safety Report 8993291 (Version 2)
Quarter: 2013Q2

REPORT INFORMATION
  Report Type: Spontaneous
  Country: US (occurrence: US)
  Receive Date: 20130102
  Receipt Date: 20130418
  Transmission Date: 20140414
  Serious: Yes (Hospitalization, Other)
  Sender: FDA-Public Use
  Company Number: US-INCYTE CORPORATION-2012IN002658

PATIENT
  Age: 62 Year
  Sex: Male
  Weight: 76.19 kg

DRUGS (17)
  1. JAKAFI [Suspect]
     Indication: MYELOFIBROSIS
     Dosage: 20 MG, BID
     Route: 048
     Dates: start: 20121127, end: 20121218
  2. JAKAFI [Suspect]
     Indication: SPLENOMEGALY
  3. PREDNISONE [Concomitant]
     Dosage: 15 MG, QD
  4. DIOVAN [Concomitant]
     Dosage: 320 MG, QHS
  5. METOPROLOL [Concomitant]
     Dosage: 150 MG, BID
  6. NORVASC [Concomitant]
     Dosage: 10 MG, BID
  7. POTASSIUM CITRATE [Concomitant]
     Dosage: 10 MEQ, QD
  8. LEVOXYL [Concomitant]
     Dosage: 250 MCG, QD
  9. ANDROGEL [Concomitant]
  10. LORAZEPAM [Concomitant]
     Dosage: 1 MG, QD
  11. SPIRIVA [Concomitant]
     Dosage: 18 MCG, QD
  12. SINGULAIR [Concomitant]
     Dosage: 10 MG, QHS
  13. ACIPHEX [Concomitant]
     Dosage: 20 MG, QHS
  14. LIPITOR [Concomitant]
     Dosage: 40 MG, QHS
  15. BENZONATATE [Concomitant]
     Dosage: 100 MG, TID
  16. CENTRUM SILVER [Concomitant]
  17. FERROUS SULFATE [Concomitant]

REACTIONS (2)
  - Acute myeloid leukaemia [Recovered/Resolved]
  - Splenomegaly [Recovered/Resolved]
